FAERS Safety Report 13162428 (Version 1)
Quarter: 2017Q1

REPORT INFORMATION
  Report Type: Spontaneous
  Country: US (occurrence: US)
  Receive Date: 20170130
  Receipt Date: 20170130
  Transmission Date: 20170428
  Serious: No
  Sender: FDA-Public Use
  Company Number: US-ASTRAZENECA-2017SE07800

PATIENT
  Sex: Female

DRUGS (1)
  1. FARXIGA [Suspect]
     Active Substance: DAPAGLIFLOZIN PROPANEDIOL
     Indication: DIABETES MELLITUS
     Dosage: UNKNOWN
     Route: 048
     Dates: start: 201603, end: 201611

REACTIONS (23)
  - Dysphonia [Unknown]
  - Mood swings [Unknown]
  - Myalgia [Unknown]
  - Rash [Unknown]
  - Fatigue [Unknown]
  - Nervousness [Unknown]
  - Confusional state [Unknown]
  - Dry mouth [Unknown]
  - Abdominal discomfort [Unknown]
  - Hyperhidrosis [Unknown]
  - Dizziness [Unknown]
  - Pruritus [Unknown]
  - Vomiting [Unknown]
  - Urticaria [Unknown]
  - Chest discomfort [Unknown]
  - Erythema [Unknown]
  - Muscular weakness [Unknown]
  - Vulvovaginal mycotic infection [Unknown]
  - Headache [Unknown]
  - Somnolence [Unknown]
  - Dyspnoea [Unknown]
  - Thirst [Unknown]
  - Skin exfoliation [Unknown]
